FAERS Safety Report 7931663-1 (Version None)
Quarter: 2011Q4

REPORT INFORMATION
  Report Type: 
  Country: None (occurrence: None)
  Receive Date: 20111121
  Receipt Date: 20111111
  Transmission Date: 20120403
  Serious: Yes (Other)
  Sender: FDA-Public Use
  Company Number: PHFR2011GB006503

PATIENT
  Sex: Male

DRUGS (4)
  1. CLOZARIL [Suspect]
     Dosage: 200 MG, UNK
     Route: 048
  2. CLOZARIL [Suspect]
     Indication: SCHIZOPHRENIA
     Route: 048
     Dates: start: 20100729
  3. CLOZARIL [Suspect]
     Dosage: 50 MG, UNK
     Route: 048
  4. PROPRANOLOL [Concomitant]
     Dosage: 20 MG, UNK

REACTIONS (1)
  - DRUG ADMINISTRATION ERROR [None]
